FAERS Safety Report 23668889 (Version 1)
Quarter: 2024Q1

REPORT INFORMATION
  Report Type: Spontaneous
  Country: US (occurrence: None)
  Receive Date: 20240323
  Receipt Date: 20240323
  Transmission Date: 20240410
  Serious: No
  Sender: FDA-Public Use
  Company Number: None

PATIENT
  Sex: Female
  Weight: 68 kg

DRUGS (6)
  1. CYCLOPHOSPHAMIDE [Suspect]
     Active Substance: CYCLOPHOSPHAMIDE
     Dates: end: 20240318
  2. CYTARABINE [Suspect]
     Active Substance: CYTARABINE
     Dates: end: 20240318
  3. SPRYCEL [Suspect]
     Active Substance: DASATINIB
     Dates: end: 20240321
  4. DOXORUBICIN HYDROCHLORIDE [Suspect]
     Active Substance: DOXORUBICIN HYDROCHLORIDE
     Dates: end: 20240318
  5. MESNA [Suspect]
     Active Substance: MESNA
     Dates: end: 20240318
  6. VINCRISTINE SULFATE [Suspect]
     Active Substance: VINCRISTINE SULFATE

REACTIONS (2)
  - Headache [None]
  - Thrombocytopenia [None]

NARRATIVE: CASE EVENT DATE: 20240321
